FAERS Safety Report 5172658-3 (Version None)
Quarter: 2006Q4

REPORT INFORMATION
  Report Type: 
  Country: None (occurrence: None)
  Receive Date: 20061205
  Receipt Date: 20061120
  Transmission Date: 20070319
  Serious: Yes (Other)
  Sender: FDA-Public Use
  Company Number: 2006-304

PATIENT
  Age: 61 Year
  Sex: Female
  Weight: 52 kg

DRUGS (4)
  1. CIPROFLOXACIN [Suspect]
     Indication: URINARY TRACT INFECTION
     Dosage: 500 MG (2/DAY)
  2. MINOCYCLINE HCL [Suspect]
     Indication: ACNE
     Dosage: 100MG/DAY
  3. BETAHISTINE [Concomitant]
  4. NITRAZEPAM [Concomitant]

REACTIONS (1)
  - CHOLESTASIS [None]
